FAERS Safety Report 5953732-8 (Version None)
Quarter: 2008Q4

REPORT INFORMATION
  Report Type: 
  Country: None (occurrence: None)
  Receive Date: 20081114
  Receipt Date: 20081106
  Transmission Date: 20090506
  Serious: Yes (Hospitalization, Other)
  Sender: FDA-Public Use
  Company Number: DE-ASTRAZENECA-2008PK02423

PATIENT
  Age: 22064 Day
  Sex: Female
  Weight: 79 kg

DRUGS (4)
  1. ARIMIDEX [Suspect]
     Indication: BREAST CANCER
     Route: 048
     Dates: start: 20070525, end: 20080920
  2. ARIMIDEX [Suspect]
     Route: 048
     Dates: start: 20081106
  3. BISOPROLOL FUMARATE [Concomitant]
  4. FENISTIL-RETARD [Concomitant]

REACTIONS (5)
  - COLONIC POLYP [None]
  - DIARRHOEA [None]
  - HEPATIC STEATOSIS [None]
  - TRANSAMINASES INCREASED [None]
  - URTICARIA [None]
